FAERS Safety Report 13403225 (Version 1)
Quarter: 2017Q2

REPORT INFORMATION
  Report Type: Spontaneous
  Country: US (occurrence: US)
  Receive Date: 20170404
  Receipt Date: 20170404
  Transmission Date: 20170830
  Serious: No
  Sender: FDA-Public Use
  Company Number: US-ROCHE-1890216

PATIENT
  Age: 29 Year
  Sex: Male

DRUGS (4)
  1. GEMCITABINE [Suspect]
     Active Substance: GEMCITABINE\GEMCITABINE HYDROCHLORIDE
     Indication: NON-RENAL CELL CARCINOMA OF KIDNEY
     Route: 065
  2. BEVACIZUMAB [Suspect]
     Active Substance: BEVACIZUMAB
     Indication: NON-RENAL CELL CARCINOMA OF KIDNEY
     Route: 065
  3. PACLITAXEL. [Suspect]
     Active Substance: PACLITAXEL
     Indication: NON-RENAL CELL CARCINOMA OF KIDNEY
     Route: 065
  4. CARBOPLATIN. [Suspect]
     Active Substance: CARBOPLATIN
     Indication: NON-RENAL CELL CARCINOMA OF KIDNEY
     Dosage: AUC OF 4
     Route: 065

REACTIONS (1)
  - Cytopenia [Unknown]
